FAERS Safety Report 13908727 (Version 1)
Quarter: 2017Q3

REPORT INFORMATION
  Report Type: Spontaneous
  Country: US (occurrence: US)
  Receive Date: 20170827
  Receipt Date: 20170827
  Transmission Date: 20171127
  Serious: No
  Sender: FDA-Public Use
  Company Number: US-KAMADA LIMITED-2017US003595

PATIENT

DRUGS (5)
  1. GLASSIA [Suspect]
     Active Substance: .ALPHA.1-PROTEINASE INHIBITOR HUMAN
     Indication: ALPHA-1 ANTI-TRYPSIN DEFICIENCY
     Dosage: 60 MG/KG, 1/WEEK
     Route: 042
     Dates: start: 201702, end: 20170303
  2. FLOVENT [Concomitant]
     Active Substance: FLUTICASONE PROPIONATE
  3. OXYGEN. [Concomitant]
     Active Substance: OXYGEN
     Dosage: 2 L, CONTINUOUSLY
  4. COMBIVENT [Concomitant]
     Active Substance: ALBUTEROL SULFATE\IPRATROPIUM BROMIDE
  5. ANORO ELLIPTA [Concomitant]
     Active Substance: UMECLIDINIUM BROMIDE\VILANTEROL TRIFENATATE

REACTIONS (2)
  - Chest discomfort [Unknown]
  - Throat irritation [Unknown]
